FAERS Safety Report 5585393-4 (Version None)
Quarter: 2008Q1

REPORT INFORMATION
  Report Type: 
  Country: None (occurrence: None)
  Receive Date: 20080109
  Receipt Date: 20071228
  Transmission Date: 20080703
  Serious: Yes (Death, Hospitalization)
  Sender: FDA-Public Use
  Company Number: US-KINGPHARMUSA00001-K200701652

PATIENT

DRUGS (6)
  1. ALTACE [Suspect]
     Dosage: 2.5 MG, UNK
     Route: 048
  2. CORDARONE [Suspect]
     Dosage: 200 MG, QD, 5 DAYS PER WEEK
     Route: 048
     Dates: start: 20050101, end: 20070904
  3. TAHOR [Suspect]
     Dosage: 10 MG, QD
     Route: 048
  4. INEXIUM    /01479302/ [Suspect]
     Dosage: 20 MG, QD
     Route: 048
  5. PREVISCAN   /00789001/ [Suspect]
     Dosage: 20 MG, UNK
     Route: 048
     Dates: start: 20050101
  6. NITRODERM [Concomitant]
     Dosage: 5 MG, QD
     Route: 062

REACTIONS (5)
  - CARDIOPULMONARY FAILURE [None]
  - DYSPNOEA [None]
  - FALL [None]
  - HYPOXIA [None]
  - INTERSTITIAL LUNG DISEASE [None]
